FAERS Safety Report 7113273-1 (Version None)
Quarter: 2010Q4

REPORT INFORMATION
  Report Type: 
  Country: None (occurrence: None)
  Receive Date: 20101119
  Receipt Date: 20100528
  Transmission Date: 20110411
  Serious: No
  Sender: FDA-Public Use
  Company Number: A0861996A

PATIENT
  Age: 28 Year
  Sex: Female

DRUGS (8)
  1. WELLBUTRIN [Suspect]
     Indication: DEPRESSION
     Dosage: 150MG TWICE PER DAY
     Route: 048
     Dates: start: 20090101, end: 20100201
  2. SINGULAIR [Concomitant]
  3. PROTONIX [Concomitant]
  4. ALLEGRA D 24 HOUR [Concomitant]
  5. BECONASE AQ [Concomitant]
  6. ADVAIR DISKUS 100/50 [Concomitant]
  7. VENTOLIN HFA [Concomitant]
  8. IBUPROFEN [Concomitant]

REACTIONS (3)
  - CRYING [None]
  - DRUG INEFFECTIVE [None]
  - NIGHTMARE [None]
